FAERS Safety Report 9520081 (Version 1)
Quarter: 2013Q1

REPORT INFORMATION
  Report Type: Spontaneous
  Country: US (occurrence: None)
  Receive Date: 20130305
  Receipt Date: 20130305
  Transmission Date: 20140127
  Serious: Yes (Hospitalization, Other)
  Sender: FDA-Public Use
  Company Number: 163-21880-12013231

PATIENT
  Age: 78 Year
  Sex: Female

DRUGS (1)
  1. REVLIMID [Suspect]
     Indication: PLASMA CELL MYELOMA
     Dosage: QD X 21 DAYS ON, THEN 7 DAYS OFF
     Route: 048
     Dates: start: 20120201

REACTIONS (10)
  - Renal failure acute [None]
  - Dehydration [None]
  - Full blood count abnormal [None]
  - White blood cell count decreased [None]
  - Platelet count decreased [None]
  - Haemoglobin decreased [None]
  - Vomiting [None]
  - Diarrhoea [None]
  - Nausea [None]
  - Abdominal pain [None]
